FAERS Safety Report 8409243-3 (Version None)
Quarter: 2012Q2

REPORT INFORMATION
  Report Type: 
  Country: None (occurrence: None)
  Receive Date: 20120604
  Receipt Date: 20120527
  Transmission Date: 20120825
  Serious: Yes (Other)
  Sender: FDA-Public Use
  Company Number: US-BAYER-2012-053894

PATIENT
  Age: 44 Year
  Sex: Female
  Weight: 43.537 kg

DRUGS (2)
  1. TAMOXIFEN CITRATE [Concomitant]
  2. RID MOUSSE [Suspect]
     Indication: LICE INFESTATION
     Route: 067

REACTIONS (1)
  - VAGINAL DISCHARGE [None]
